FAERS Safety Report 6531123-9 (Version None)
Quarter: 2010Q1

REPORT INFORMATION
  Report Type: 
  Country: None (occurrence: None)
  Receive Date: 20100108
  Receipt Date: 20091224
  Transmission Date: 20100710
  Serious: Yes (Hospitalization)
  Sender: FDA-Public Use
  Company Number: FR-WYE-H12796009

PATIENT
  Sex: Male

DRUGS (9)
  1. INIPOMP [Suspect]
     Dosage: UNKNOWN
     Route: 065
  2. APRANAX [Suspect]
     Dosage: UNKNOWN
     Route: 065
  3. SERETIDE [Concomitant]
     Dosage: UNKNOWN
     Route: 065
  4. PANDEMRIX [Suspect]
     Dosage: UNKNOWN
     Route: 065
     Dates: start: 20091124, end: 20091124
  5. MYOLASTAN [Concomitant]
     Dosage: UNKNOWN
     Route: 065
  6. TAHOR [Concomitant]
     Dosage: UNKNOWN
     Route: 065
  7. VENTOLIN [Concomitant]
     Dosage: UNKNOWN
     Route: 065
  8. HEXAQUINE [Suspect]
     Dosage: UNKNOWN
     Route: 065
  9. FOZITEC [Concomitant]
     Dosage: UNKNOWN
     Route: 065

REACTIONS (1)
  - THROMBOCYTOPENIC PURPURA [None]
